FAERS Safety Report 23224475 (Version 2)
Quarter: 2024Q1

REPORT INFORMATION
  Report Type: Spontaneous
  Country: CN (occurrence: CN)
  Receive Date: 20231124
  Receipt Date: 20240103
  Transmission Date: 20240409
  Serious: Yes (Other)
  Sender: FDA-Public Use
  Company Number: CN-JNJFOC-20231152776

PATIENT
  Age: 2 Year
  Weight: 15 kg

DRUGS (1)
  1. CHILDRENS MOTRIN [Suspect]
     Active Substance: IBUPROFEN
     Indication: Pyrexia
     Dosage: 4 ML AT A TIME
     Route: 048
     Dates: start: 20231109

REACTIONS (3)
  - Hypersensitivity vasculitis [Unknown]
  - Product quality issue [Unknown]
  - Crying [Unknown]

NARRATIVE: CASE EVENT DATE: 20231109
